FAERS Safety Report 8401874-X (Version None)
Quarter: 2012Q2

REPORT INFORMATION
  Report Type: 
  Country: None (occurrence: None)
  Receive Date: 20120601
  Receipt Date: 20120319
  Transmission Date: 20120825
  Serious: Yes (Death)
  Sender: FDA-Public Use
  Company Number: AR-SANOFI-AVENTIS-2009SA005579

PATIENT
  Age: 72 Year
  Sex: Male
  Weight: 87 kg

DRUGS (8)
  1. PREDNISONE TAB [Suspect]
     Route: 048
     Dates: start: 20090331
  2. AFLIBERCEPT [Suspect]
     Route: 042
     Dates: start: 20090331, end: 20090331
  3. GLYBURIDE [Concomitant]
     Dates: start: 19960501
  4. DOCETAXEL [Suspect]
     Route: 042
     Dates: start: 20090331, end: 20090331
  5. LEUPROLIDE ACETATE [Concomitant]
     Indication: HORMONE REPLACEMENT THERAPY
     Dates: start: 20050803
  6. ENALAPRIL MALEATE [Concomitant]
     Dates: start: 20070928
  7. DOCETAXEL [Suspect]
     Route: 042
     Dates: start: 20091021, end: 20091021
  8. AFLIBERCEPT [Suspect]
     Route: 042
     Dates: start: 20091021, end: 20091021

REACTIONS (1)
  - SUDDEN DEATH [None]
